FAERS Safety Report 4330095-5 (Version None)
Quarter: 2004Q1

REPORT INFORMATION
  Report Type: 
  Country: None (occurrence: None)
  Receive Date: 20040329
  Receipt Date: 20040322
  Transmission Date: 20041129
  Serious: Yes (Death, Life-Threatening)
  Sender: FDA-Public Use
  Company Number: GB-JNJFOC-20040304755

PATIENT
  Age: 70 Year
  Sex: Male

DRUGS (2)
  1. DURAGESIC [Suspect]
     Indication: PAIN
     Dosage: 25 UG/HR, TRANSDERMAL
     Route: 062
  2. MORPHINE SULFATE [Suspect]
     Indication: PAIN
     Dosage: 50 MG, 1 IN 12 HOUR

REACTIONS (9)
  - COLON CANCER METASTATIC [None]
  - CONFUSIONAL STATE [None]
  - CYANOSIS CENTRAL [None]
  - DRUG INTERACTION [None]
  - MALIGNANT NEOPLASM PROGRESSION [None]
  - MIOSIS [None]
  - RESPIRATORY RATE DECREASED [None]
  - SEDATION [None]
  - SOMNOLENCE [None]
